FAERS Safety Report 23300469 (Version 1)
Quarter: 2023Q4

REPORT INFORMATION
  Report Type: Report from Study
  Country: US (occurrence: US)
  Receive Date: 20231215
  Receipt Date: 20231215
  Transmission Date: 20240110
  Serious: Yes (Other)
  Sender: FDA-Public Use
  Company Number: US-ABBVIE-5535902

PATIENT
  Sex: Female

DRUGS (1)
  1. RINVOQ [Suspect]
     Active Substance: UPADACITINIB
     Indication: Product used for unknown indication
     Route: 048
     Dates: start: 20231128, end: 202312

REACTIONS (9)
  - Gastrointestinal haemorrhage [Unknown]
  - Cheilitis [Unknown]
  - Abdominal pain [Unknown]
  - Ear pain [Not Recovered/Not Resolved]
  - Ear haemorrhage [Unknown]
  - Myalgia [Unknown]
  - Diarrhoea [Unknown]
  - Abdominal distension [Unknown]
  - Faeces discoloured [Unknown]

NARRATIVE: CASE EVENT DATE: 20230101
